FAERS Safety Report 25976106 (Version 2)
Quarter: 2025Q4

REPORT INFORMATION
  Report Type: Report from Study
  Country: CA (occurrence: CA)
  Receive Date: 20251029
  Receipt Date: 20251106
  Transmission Date: 20260117
  Serious: Yes (Other)
  Sender: HLS THERAPEUTICS
  Company Number: CA-HLS-202502816

PATIENT
  Sex: Male

DRUGS (12)
  1. CLOZARIL [Suspect]
     Active Substance: CLOZAPINE
     Indication: Schizophrenia
     Route: 065
  2. CLOZARIL [Suspect]
     Active Substance: CLOZAPINE
     Indication: Schizophrenia
     Dosage: EVERY BEDTIME
     Route: 048
     Dates: start: 20121002
  3. BENZTROPINE [Concomitant]
     Active Substance: BENZTROPINE
     Indication: Product used for unknown indication
     Dosage: TWICE A DAY
     Route: 048
     Dates: end: 2024
  4. LITHIUM [Suspect]
     Active Substance: LITHIUM
     Indication: Schizophrenia
     Dosage: REDUCED DOSE
     Route: 065
     Dates: end: 202409
  5. LITHIUM [Suspect]
     Active Substance: LITHIUM
     Indication: Schizophrenia
     Route: 065
  6. LITHIUM [Suspect]
     Active Substance: LITHIUM
     Indication: Schizophrenia
     Route: 065
  7. LOXAPINE [Concomitant]
     Active Substance: LOXAPINE
     Indication: Product used for unknown indication
     Route: 065
  8. RISPERIDONE [Concomitant]
     Active Substance: RISPERIDONE
     Indication: Product used for unknown indication
     Route: 065
  9. POLYETHYLENE GLYCOL 3350 [Concomitant]
     Active Substance: POLYETHYLENE GLYCOL 3350
     Indication: Product used for unknown indication
     Dosage: AS NEEDED.
     Route: 048
  10. DOCUSATE SODIUM [Concomitant]
     Active Substance: DOCUSATE SODIUM
     Indication: Product used for unknown indication
     Dosage: TWICE A DAY, AS NEEDED.
     Route: 048
  11. IVERMECTIN [Concomitant]
     Active Substance: IVERMECTIN
     Indication: Eosinophilia
     Dosage: 15 MG X 1 AND REPEATED TWO WEEKS LATER
     Route: 065
     Dates: start: 20221215
  12. OLANZAPINE [Concomitant]
     Active Substance: OLANZAPINE
     Route: 048

REACTIONS (5)
  - Toxicity to various agents [Unknown]
  - Hypoglycaemia [Unknown]
  - Lymphadenopathy [Unknown]
  - Nephrogenic diabetes insipidus [Unknown]
  - Schistosomiasis [Unknown]

NARRATIVE: CASE EVENT DATE: 20200101
